FAERS Safety Report 15832397 (Version 4)
Quarter: 2019Q3

REPORT INFORMATION
  Report Type: Spontaneous
  Country: CN (occurrence: CN)
  Receive Date: 20190116
  Receipt Date: 20190708
  Transmission Date: 20191004
  Serious: Yes (Other)
  Sender: FDA-Public Use
  Company Number: CN-SA-2018SA343267

PATIENT
  Age: 52 Year
  Sex: Female

DRUGS (2)
  1. METFORMIN [Concomitant]
     Active Substance: METFORMIN HYDROCHLORIDE
     Indication: DIABETES MELLITUS
     Dosage: 1 DF, BID
     Route: 048
     Dates: start: 2013
  2. LANTUS [Suspect]
     Active Substance: INSULIN GLARGINE
     Indication: DIABETES MELLITUS
     Dosage: 18 U, QD
     Route: 058
     Dates: start: 2013

REACTIONS (3)
  - Product counterfeit [Unknown]
  - Blood glucose increased [Recovered/Resolved]
  - Diabetic nephropathy [Recovered/Resolved]

NARRATIVE: CASE EVENT DATE: 20181207
